FAERS Safety Report 19147761 (Version 2)
Quarter: 2021Q2

REPORT INFORMATION
  Report Type: Spontaneous
  Country: FR (occurrence: FR)
  Receive Date: 20210416
  Receipt Date: 20210506
  Transmission Date: 20210717
  Serious: Yes (Life-Threatening, Other)
  Sender: FDA-Public Use
  Company Number: FR-JNJFOC-20210430152

PATIENT
  Age: 88 Year
  Sex: Male

DRUGS (5)
  1. ZOPICLONE [Interacting]
     Active Substance: ZOPICLONE
     Indication: PRODUCT USED FOR UNKNOWN INDICATION
     Dosage: UNK
     Route: 048
     Dates: start: 20210223, end: 20210223
  2. TRAMADOL HYDROCHLORIDE. [Suspect]
     Active Substance: TRAMADOL HYDROCHLORIDE
     Indication: PRODUCT USED FOR UNKNOWN INDICATION
     Dosage: 1000 MILLIGRAM, ONCE
     Route: 048
     Dates: start: 20210223, end: 20210223
  3. ATENOLOL. [Suspect]
     Active Substance: ATENOLOL
     Indication: PRODUCT USED FOR UNKNOWN INDICATION
     Dosage: 1500 MILLIGRAM, ONCE
     Route: 048
     Dates: start: 20210223, end: 20210223
  4. SINTROM [Suspect]
     Active Substance: ACENOCOUMAROL
     Indication: PRODUCT USED FOR UNKNOWN INDICATION
     Dosage: UNK
     Route: 048
     Dates: start: 20210223, end: 20210223
  5. METOCLOPRAMIDE. [Suspect]
     Active Substance: METOCLOPRAMIDE
     Indication: PRODUCT USED FOR UNKNOWN INDICATION
     Dosage: 200 MILLIGRAM, ONCE
     Route: 048
     Dates: start: 20210223, end: 20210223

REACTIONS (8)
  - Coma [Recovered/Resolved]
  - Respiratory depression [Recovered/Resolved with Sequelae]
  - Epistaxis [Recovered/Resolved]
  - Hypotension [Recovered/Resolved with Sequelae]
  - Atrial fibrillation [Recovered/Resolved with Sequelae]
  - Drug interaction [Unknown]
  - Poisoning deliberate [Recovered/Resolved with Sequelae]
  - Intentional overdose [Unknown]

NARRATIVE: CASE EVENT DATE: 20210223
